FAERS Safety Report 5381745-6 (Version None)
Quarter: 2007Q3

REPORT INFORMATION
  Report Type: 
  Country: None (occurrence: None)
  Receive Date: 20070709
  Receipt Date: 20070629
  Transmission Date: 20080115
  Serious: Yes (Hospitalization, Other)
  Sender: FDA-Public Use
  Company Number: PHBS2007BR10211

PATIENT
  Age: 66 Year
  Sex: Female

DRUGS (2)
  1. FORASEQ [Suspect]
     Dosage: 1 DF, BID
  2. SPIRIVA [Concomitant]

REACTIONS (10)
  - ABASIA [None]
  - ANGIOPLASTY [None]
  - ANOREXIA [None]
  - APHASIA [None]
  - BRONCHOSPASM [None]
  - CATHETERISATION CARDIAC [None]
  - FATIGUE [None]
  - FEELING ABNORMAL [None]
  - MYOCARDIAL INFARCTION [None]
  - PULMONARY OEDEMA [None]
